FAERS Safety Report 16937989 (Version 6)
Quarter: 2021Q4

REPORT INFORMATION
  Report Type: Report from Study
  Country: RU (occurrence: RU)
  Receive Date: 20191018
  Receipt Date: 20211222
  Transmission Date: 20220303
  Serious: Yes (Life-Threatening, Hospitalization)
  Sender: FDA-Public Use
  Company Number: None

PATIENT
  Age: 35 Year
  Sex: Female
  Weight: 57.1 kg

DRUGS (20)
  1. MIDOSTAURIN [Suspect]
     Active Substance: MIDOSTAURIN
     Indication: Acute myeloid leukaemia
     Dosage: UNK
     Route: 048
     Dates: start: 20190913, end: 20190926
  2. CYTARABINE [Suspect]
     Active Substance: CYTARABINE
     Indication: Acute myeloid leukaemia
     Dosage: 200 MG/M2, QD
     Route: 042
     Dates: start: 20190906
  3. DAUNORUBICIN [Suspect]
     Active Substance: DAUNORUBICIN
     Indication: Acute myeloid leukaemia
     Dosage: 60 MG/M2, QD
     Route: 042
     Dates: start: 20190906
  4. ACYCLOVIR [Concomitant]
     Active Substance: ACYCLOVIR
     Indication: Antiviral prophylaxis
     Dosage: UNK
     Route: 065
     Dates: start: 20190903
  5. PIPERACILLIN AND TAZOBACTAM [Concomitant]
     Active Substance: PIPERACILLIN SODIUM\TAZOBACTAM SODIUM
     Indication: Sepsis
     Dosage: UNK
     Route: 065
     Dates: start: 20190929, end: 20191021
  6. ANIDULAFUNGIN [Concomitant]
     Active Substance: ANIDULAFUNGIN
     Indication: Febrile neutropenia
     Dosage: UNK
     Route: 065
     Dates: start: 20190924, end: 20190926
  7. ANIDULAFUNGIN [Concomitant]
     Active Substance: ANIDULAFUNGIN
     Indication: Proctitis
  8. CEFOPERAZONE SODIUM\SULBACTAM [Concomitant]
     Active Substance: CEFOPERAZONE SODIUM\SULBACTAM
     Indication: Febrile neutropenia
     Dosage: UNK
     Route: 065
     Dates: start: 20190907, end: 20190911
  9. MEROPENEM [Concomitant]
     Active Substance: MEROPENEM
     Indication: Febrile neutropenia
     Dosage: UNK
     Route: 065
     Dates: start: 20190911, end: 20190927
  10. AMIKACIN [Concomitant]
     Active Substance: AMIKACIN
     Indication: Febrile neutropenia
     Dosage: UNK
     Route: 065
     Dates: start: 20190911, end: 20190927
  11. VANCOMYCIN [Concomitant]
     Active Substance: VANCOMYCIN
     Indication: Febrile neutropenia
     Dosage: UNK
     Route: 065
     Dates: start: 20190909, end: 20190914
  12. TIGECYCLINE [Concomitant]
     Active Substance: TIGECYCLINE
     Indication: Febrile neutropenia
     Dosage: UNK
     Route: 065
     Dates: start: 20190914, end: 20190927
  13. POTASSIUM CHLORIDE [Concomitant]
     Active Substance: POTASSIUM CHLORIDE
     Indication: Prophylaxis
     Dosage: UNK
     Route: 065
     Dates: start: 20190903
  14. FOSFOMYCIN [Concomitant]
     Active Substance: FOSFOMYCIN
     Indication: Febrile neutropenia
     Dosage: UNK
     Route: 065
     Dates: start: 20190922, end: 20190927
  15. KETOPROFEN [Concomitant]
     Active Substance: KETOPROFEN
     Indication: Febrile neutropenia
     Dosage: UNK
     Route: 065
     Dates: start: 20190907, end: 20191021
  16. KETOPROFEN [Concomitant]
     Active Substance: KETOPROFEN
     Indication: Proctitis
  17. THIAMINE [Concomitant]
     Active Substance: THIAMINE
     Indication: Sepsis
     Dosage: UNK
     Route: 065
     Dates: start: 20190927, end: 20191021
  18. OMEPRAZOLE [Concomitant]
     Active Substance: OMEPRAZOLE
     Indication: Prophylaxis against gastrointestinal ulcer
     Dosage: UNK
     Route: 065
     Dates: start: 20190903
  19. AZTREONAM [Concomitant]
     Active Substance: AZTREONAM
     Indication: Sepsis
     Dosage: UNK
     Route: 065
     Dates: start: 20190927, end: 20191022
  20. EGG WHITE [Concomitant]
     Active Substance: EGG WHITE
     Indication: Blood albumin decreased
     Dosage: UNK
     Route: 065
     Dates: start: 20190927, end: 20191021

REACTIONS (1)
  - Septic shock [Recovered/Resolved]

NARRATIVE: CASE EVENT DATE: 20190927
